FAERS Safety Report 9259868 (Version 1)
Quarter: 2013Q2

REPORT INFORMATION
  Report Type: Spontaneous
  Country: DE (occurrence: DE)
  Receive Date: 20130429
  Receipt Date: 20130429
  Transmission Date: 20140414
  Serious: Yes (Hospitalization)
  Sender: FDA-Public Use
  Company Number: DE-RANBAXY-2013RR-68175

PATIENT
  Age: 41 Year
  Sex: Male
  Weight: 90 kg

DRUGS (4)
  1. RAMIPRIL [Suspect]
     Indication: HYPERTENSION
     Dosage: 1X1
     Route: 065
     Dates: start: 20120927, end: 20121112
  2. RAMIPRIL/HYDROCHLOROTHIAZIDE [Suspect]
     Indication: HYPERTENSION
     Dosage: 1X1
     Route: 065
     Dates: start: 20121113, end: 20121119
  3. METOCLOPRAMIDE [Suspect]
     Indication: ABDOMINAL DISCOMFORT
     Dosage: 30 GTT, TID
     Route: 065
     Dates: start: 20121112, end: 20121114
  4. NOVAMINSULFON [Concomitant]
     Indication: PRODUCT USED FOR UNKNOWN INDICATION
     Dosage: 30 GTT, TID
     Route: 065
     Dates: start: 20121112, end: 20121114

REACTIONS (4)
  - Hepatitis toxic [Not Recovered/Not Resolved]
  - Jaundice [Not Recovered/Not Resolved]
  - Somnolence [Not Recovered/Not Resolved]
  - Performance status decreased [Not Recovered/Not Resolved]
